FAERS Safety Report 8098304 (Version 6)
Quarter: 2013Q4

REPORT INFORMATION
  Report Type: Spontaneous
  Country: US (occurrence: US)
  Receive Date: 20110819
  Receipt Date: 20131114
  Transmission Date: 20140711
  Serious: Yes (Hospitalization)
  Sender: FDA-Public Use
  Company Number: US-GLAXOSMITHKLINE-A0915698A

PATIENT
  Age: 42 Year
  Sex: Female
  Weight: 72.3 kg

DRUGS (2)
  1. AVANDIA [Suspect]
     Indication: DIABETES MELLITUS
     Dosage: 8MG PER DAY
     Route: 048
     Dates: start: 200202, end: 200606
  2. AVANDAMET [Suspect]
     Indication: DIABETES MELLITUS
     Route: 048
     Dates: start: 200612, end: 200705

REACTIONS (3)
  - Cardiac failure congestive [Not Recovered/Not Resolved]
  - Diastolic dysfunction [Unknown]
  - Hypertension [Unknown]
